FAERS Safety Report 10005204 (Version 3)
Quarter: 2014Q2

REPORT INFORMATION
  Report Type: Spontaneous
  Country: US (occurrence: US)
  Receive Date: 20140312
  Receipt Date: 20140611
  Transmission Date: 20141212
  Serious: No
  Sender: FDA-Public Use
  Company Number: US-INCYTE CORPORATION-2013IN002939

PATIENT
  Age: 76 Year
  Sex: Female
  Weight: 65.76 kg

DRUGS (11)
  1. JAKAFI [Suspect]
     Indication: MYELOFIBROSIS
     Dosage: 20 MG, QD
     Route: 048
     Dates: start: 20130722, end: 20131227
  2. JAKAFI [Suspect]
     Dosage: UNK
     Route: 048
  3. EVISTA [Concomitant]
     Dosage: 80 MG, UNK
     Route: 048
  4. CELEBREX [Concomitant]
     Dosage: 100 MG, UNK
     Route: 048
  5. NORVASC [Concomitant]
  6. HYDROCHLOROTHIAZIDE [Concomitant]
     Dosage: 25 MG, UNK
     Route: 048
  7. LISINOPRIL [Concomitant]
     Dosage: 10 MG, UNK
     Route: 048
  8. SODIUM CHLORIDE [Concomitant]
     Dosage: 1 G, UNK
     Route: 048
  9. ASPIRIN [Concomitant]
     Dosage: 325 MG, UNK
     Route: 048
  10. BIOTIN [Concomitant]
     Dosage: 10 MG, UNK
     Route: 048
  11. CALCIUM [Concomitant]

REACTIONS (4)
  - Nasal congestion [Recovered/Resolved]
  - Constipation [Recovered/Resolved]
  - Spondylitis [Recovered/Resolved]
  - Weight increased [Unknown]
